FAERS Safety Report 21599239 (Version 1)
Quarter: 2022Q4

REPORT INFORMATION
  Report Type: Spontaneous
  Country: US (occurrence: None)
  Receive Date: 20221114
  Receipt Date: 20221114
  Transmission Date: 20230113
  Serious: No
  Sender: FDA-Public Use
  Company Number: None

PATIENT
  Age: 73 Year
  Sex: Female

DRUGS (1)
  1. CAPECITABINE [Suspect]
     Active Substance: CAPECITABINE
     Indication: Neoplasm malignant
     Dosage: 1500MG BID ORAL?
     Route: 048
     Dates: start: 202206

REACTIONS (2)
  - Neuropathy peripheral [None]
  - Therapy change [None]

NARRATIVE: CASE EVENT DATE: 20221114
